FAERS Safety Report 7090838-7 (Version None)
Quarter: 2010Q4

REPORT INFORMATION
  Report Type: 
  Country: None (occurrence: None)
  Receive Date: 20101012
  Receipt Date: 20100608
  Transmission Date: 20110411
  Serious: Yes (Other)
  Sender: FDA-Public Use
  Company Number: 1000014382

PATIENT
  Age: 74 Year
  Sex: Male

DRUGS (6)
  1. LEXAPRO [Suspect]
     Dosage: ORAL
     Route: 048
  2. LAMICTAL [Suspect]
     Indication: CONVULSION
     Dosage: 350 MG (350 MG, 1 IN 1 D), ORAL
     Route: 048
     Dates: start: 20100301
  3. DIGOXIN [Concomitant]
  4. COUMADIN [Concomitant]
  5. VIMPAT [Concomitant]
  6. SEROQUEL [Concomitant]

REACTIONS (4)
  - ANGER [None]
  - CONFUSIONAL STATE [None]
  - HALLUCINATION [None]
  - SUICIDAL IDEATION [None]
